FAERS Safety Report 15772317 (Version 1)
Quarter: 2018Q4

REPORT INFORMATION
  Report Type: Report from Study
  Country: CA (occurrence: CA)
  Receive Date: 20181228
  Receipt Date: 20181228
  Transmission Date: 20190205
  Serious: Yes (Death)
  Sender: FDA-Public Use
  Company Number: CA-TAIHO ONCOLOGY  INC-EU-2018-02538

PATIENT
  Age: 34 Year
  Sex: Female
  Weight: 65.7 kg

DRUGS (1)
  1. LONSURF [Suspect]
     Active Substance: TIPIRACIL HYDROCHLORIDE\TRIFLURIDINE
     Indication: PRODUCT USED FOR UNKNOWN INDICATION
     Dosage: CURRENT CYCLE 1
     Route: 048
     Dates: start: 20181129, end: 20181211

REACTIONS (1)
  - Death [Fatal]

NARRATIVE: CASE EVENT DATE: 20181208
